FAERS Safety Report 10882930 (Version 2)
Quarter: 2015Q1

REPORT INFORMATION
  Report Type: Report from Study
  Country: DE (occurrence: DE)
  Receive Date: 20150303
  Receipt Date: 20150320
  Transmission Date: 20150721
  Serious: Yes (Death, Hospitalization)
  Sender: FDA-Public Use
  Company Number: DE-TEVA-538590USA

PATIENT
  Age: 78 Year
  Sex: Female

DRUGS (6)
  1. BENDAMUSTINE HYDROCHLORIDE [Suspect]
     Active Substance: BENDAMUSTINE HYDROCHLORIDE
     Indication: MALIGNANT LYMPHOID NEOPLASM
     Route: 042
     Dates: start: 20150124
  2. RITUXIMAB [Suspect]
     Active Substance: RITUXIMAB
     Indication: MALIGNANT LYMPHOID NEOPLASM
     Route: 058
     Dates: start: 20150123
  3. PREDNISOLONE. [Suspect]
     Active Substance: PREDNISOLONE
     Indication: MALIGNANT LYMPHOID NEOPLASM
     Route: 065
     Dates: start: 20150123
  4. BENDAMUSTINE HYDROCHLORIDE [Suspect]
     Active Substance: BENDAMUSTINE HYDROCHLORIDE
     Route: 042
     Dates: start: 20150125
  5. PREDNISOLONE. [Suspect]
     Active Substance: PREDNISOLONE
     Indication: MALIGNANT LYMPHOID NEOPLASM
     Route: 065
     Dates: start: 20150116
  6. RITUXIMAB [Suspect]
     Active Substance: RITUXIMAB
     Indication: MALIGNANT LYMPHOID NEOPLASM
     Dosage: UNK (SINGLE DOSE)
     Route: 042
     Dates: start: 20150120

REACTIONS (3)
  - Intestinal obstruction [Fatal]
  - Vomiting [Recovered/Resolved]
  - Infection [Recovered/Resolved]

NARRATIVE: CASE EVENT DATE: 20150126
